FAERS Safety Report 12844978 (Version 1)
Quarter: 2016Q4

REPORT INFORMATION
  Report Type: Spontaneous
  Country: DE (occurrence: DE)
  Receive Date: 20161013
  Receipt Date: 20161013
  Transmission Date: 20170207
  Serious: Yes (Hospitalization)
  Sender: FDA-Public Use
  Company Number: DE-TEVA-698673GER

PATIENT
  Age: 33 Year
  Sex: Male

DRUGS (1)
  1. COTRIM FORTE-RATIOPHARM 960MG TABLETTEN [Suspect]
     Active Substance: SULFAMETHOXAZOLE\TRIMETHOPRIM
     Dosage: 1DF CONTAINS 960 MG COTRIMOXAZOL CONTAINS 800 MG SULFAMETHOXAZOLE AND 160 MG TRIMETHOPRIM
     Route: 048
     Dates: start: 201609

REACTIONS (2)
  - Muscle twitching [Not Recovered/Not Resolved]
  - Paraesthesia [Not Recovered/Not Resolved]
